FAERS Safety Report 18040533 (Version 2)
Quarter: 2020Q3

REPORT INFORMATION
  Report Type: Spontaneous
  Country: EG (occurrence: EG)
  Receive Date: 20200717
  Receipt Date: 20200724
  Transmission Date: 20201103
  Serious: Yes (Other)
  Sender: FDA-Public Use
  Company Number: EG-NOVOPROD-739936

PATIENT
  Age: 696 Month
  Sex: Male
  Weight: 130 kg

DRUGS (13)
  1. ATACAND PLUS [Concomitant]
     Active Substance: CANDESARTAN CILEXETIL\HYDROCHLOROTHIAZIDE
     Indication: HYPERTENSION
     Dosage: 1 TAB.\BREAKFAST, TWO AND HALF YEARS AGO
     Route: 048
  2. COBAL F [Concomitant]
     Indication: VITAMIN SUPPLEMENTATION
     Dosage: 1 TAB.\ BREAKFAST, STARTED LAST YEAR
     Route: 048
  3. GALVUS MET [METFORMIN;VILDAGLIPTIN] [Concomitant]
     Indication: DIABETES MELLITUS
     Dosage: 2 TAB,\DAY,  2 YEARS AGO.
     Route: 048
  4. MIXTARD 30 HM PENFILL [Suspect]
     Active Substance: INSULIN HUMAN
     Indication: DIABETES MELLITUS
     Dosage: 90 IU, QD (60?0?30)
     Route: 058
  5. PROSTRIDE [Concomitant]
     Indication: PROSTATOMEGALY
     Dosage: 1 CAP,\LUNCH, , 3 YEARS AGO
     Route: 048
  6. GAPTIN [Concomitant]
     Indication: ANALGESIC THERAPY
     Dosage: 1 TAB.\DINNER
     Route: 048
  7. THIOTACID [Concomitant]
     Active Substance: .ALPHA.-LIPOIC ACID
     Indication: NEUROPATHY PERIPHERAL
     Dosage: 2 TAB.\DAY, , 5 YEARS AGO.
     Route: 048
  8. CRESTOR [Concomitant]
     Active Substance: ROSUVASTATIN CALCIUM
     Indication: HYPERCHOLESTEROLAEMIA
     Dosage: 1 TAB.\LUNCH,  STARTED LAST YEAR
     Route: 048
  9. DOXIPROCT PLUS [Concomitant]
     Indication: DYSURIA
     Dosage: AFTER URINATION, . A YEAR AGO
     Route: 061
  10. TAMSULOSIN [Concomitant]
     Active Substance: TAMSULOSIN
     Indication: PROSTATOMEGALY
     Dosage: 1 CAP\DINNER , 4 YEARS AGO.
     Route: 048
  11. OCUGARD [Concomitant]
     Indication: VITAMIN SUPPLEMENTATION
     Dosage: 1 CAP.\LUNCH, , 4 YEARS AGO.
     Route: 048
  12. ROWATINEX [ANETHOLE;BORNEOL;CINEOLE;FENCHONE;PINENE] [Concomitant]
     Indication: MICTURITION DISORDER
     Dosage: 3 CAP. BEFORE MEALS, A YEAR AGO.
     Route: 048
  13. STARKOPREX [Concomitant]
     Indication: PROSTATIC DISORDER
     Dosage: 1 TAB.\BREAKFAST, , 2 YEARS AGO,
     Route: 048

REACTIONS (2)
  - Conjunctivitis [Not Recovered/Not Resolved]
  - Tooth extraction [Not Recovered/Not Resolved]

NARRATIVE: CASE EVENT DATE: 202006
